FAERS Safety Report 6108986-4 (Version None)
Quarter: 2009Q1

REPORT INFORMATION
  Report Type: 
  Country: None (occurrence: None)
  Receive Date: 20090310
  Receipt Date: 20090225
  Transmission Date: 20090719
  Serious: Yes (Hospitalization, Other)
  Sender: FDA-Public Use
  Company Number: US-ELI_LILLY_AND_COMPANY-US200902007304

PATIENT
  Sex: Female

DRUGS (1)
  1. EVISTA [Suspect]
     Indication: OSTEOPOROSIS
     Dosage: UNK, UNKNOWN
     Route: 065
     Dates: start: 20031201

REACTIONS (5)
  - AMNESIA [None]
  - BREAST CALCIFICATIONS [None]
  - BREAST CANCER FEMALE [None]
  - BREAST MASS [None]
  - CEREBROVASCULAR ACCIDENT [None]
